FAERS Safety Report 24136522 (Version 1)
Quarter: 2024Q3

REPORT INFORMATION
  Report Type: Spontaneous
  Country: US (occurrence: None)
  Receive Date: 20240724
  Receipt Date: 20240724
  Transmission Date: 20241017
  Serious: Yes (Death)
  Sender: Public
  Company Number: None

PATIENT
  Age: 62 Year
  Sex: Male

DRUGS (1)
  1. MAVYRET [Suspect]
     Active Substance: GLECAPREVIR\PIBRENTASVIR
     Indication: Chronic hepatitis C
     Dosage: OTHER FREQUENCY : 6 PACKETS DAILY X8 WKS;?FREQ: TAKE 6 PACKETS DAILY FOR 8 WEEKS?
     Route: 048
     Dates: start: 20240410

REACTIONS (1)
  - Death [None]

NARRATIVE: CASE EVENT DATE: 20240508
